FAERS Safety Report 8117357-0 (Version None)
Quarter: 2012Q1

REPORT INFORMATION
  Report Type: 
  Country: None (occurrence: None)
  Receive Date: 20120206
  Receipt Date: 20120126
  Transmission Date: 20120608
  Serious: Yes (Hospitalization)
  Sender: FDA-Public Use
  Company Number: FR-ASTRAZENECA-2012SE06102

PATIENT
  Age: 34 Year
  Sex: Male

DRUGS (1)
  1. XYLOCAINE [Suspect]
     Indication: ANAESTHESIA
     Route: 065
     Dates: start: 19840101, end: 19840101

REACTIONS (1)
  - ANAPHYLACTIC SHOCK [None]
